FAERS Safety Report 5420718-1 (Version None)
Quarter: 2007Q3

REPORT INFORMATION
  Report Type: 
  Country: None (occurrence: None)
  Receive Date: 20070816
  Receipt Date: 20070806
  Transmission Date: 20080115
  Serious: Yes (Hospitalization)
  Sender: FDA-Public Use
  Company Number: 8025263

PATIENT
  Age: 61 Year
  Sex: Male

DRUGS (4)
  1. KEPPRA [Suspect]
     Indication: CONVULSION PROPHYLAXIS
     Dosage: 500 MG 2/D PO
     Route: 048
     Dates: start: 20070329
  2. COLCHICINE [Suspect]
     Indication: GAIT DISTURBANCE
     Dosage: 0.5 MG 2/D PO
     Route: 048
  3. PHENYTOIN [Suspect]
     Indication: CONVULSION PROPHYLAXIS
     Dosage: 300 MG /D PO
     Route: 048
  4. CEFTRIAXONE [Concomitant]

REACTIONS (1)
  - NEUTROPENIA [None]
